FAERS Safety Report 12009891 (Version 4)
Quarter: 2016Q3

REPORT INFORMATION
  Report Type: Report from Study
  Country: IT (occurrence: IT)
  Receive Date: 20160205
  Receipt Date: 20160810
  Transmission Date: 20161109
  Serious: Yes (Other)
  Sender: FDA-Public Use
  Company Number: PHHY2014IT061264

PATIENT
  Age: 36 Year
  Sex: Female

DRUGS (2)
  1. GILENYA [Suspect]
     Active Substance: FINGOLIMOD HYDROCHLORIDE
     Indication: MULTIPLE SCLEROSIS
     Dosage: UNK, QD
     Route: 048
     Dates: start: 20121113, end: 20150116
  2. EUTIROX [Concomitant]
     Active Substance: LEVOTHYROXINE SODIUM
     Indication: HYPOTHYROIDISM
     Dosage: 50 MG, UNK
     Route: 048
     Dates: start: 20120101, end: 20130610

REACTIONS (8)
  - Haematocrit decreased [Unknown]
  - White blood cell count increased [Recovered/Resolved]
  - Leukopenia [Recovered/Resolved]
  - White blood cell count decreased [Unknown]
  - Leukopenia [Recovered/Resolved]
  - Lymphopenia [Recovered/Resolved]
  - Anaemia [Recovered/Resolved]
  - Neutrophil count increased [Unknown]

NARRATIVE: CASE EVENT DATE: 20130220
